FAERS Safety Report 9013463 (Version 1)
Quarter: 2013Q1

REPORT INFORMATION
  Report Type: Spontaneous
  Country: US (occurrence: US)
  Receive Date: 20130114
  Receipt Date: 20130114
  Transmission Date: 20140127
  Serious: No
  Sender: FDA-Public Use
  Company Number: US-BAYER-2013-004623

PATIENT
  Sex: 0

DRUGS (5)
  1. ALEVE CAPLET/TABLET,MIDOL EXTENDED RELIEF CAPLET [Suspect]
     Indication: HEADACHE
  2. ADVIL [Concomitant]
  3. TYLENOL NOS [Concomitant]
  4. EXCEDRINE [Concomitant]
  5. SINUS SNUFF [Concomitant]

REACTIONS (1)
  - Drug ineffective [None]
